FAERS Safety Report 7966360-X (Version None)
Quarter: 2011Q4

REPORT INFORMATION
  Report Type: 
  Country: None (occurrence: None)
  Receive Date: 20111208
  Receipt Date: 20111128
  Transmission Date: 20120403
  Serious: Yes (Hospitalization)
  Sender: FDA-Public Use
  Company Number: FR-MPIJNJ-2011-03930

PATIENT

DRUGS (7)
  1. LASIX [Concomitant]
  2. NICARDIPINE HCL [Concomitant]
     Dosage: 50 MG, UNK
  3. VELCADE [Suspect]
     Indication: MULTIPLE MYELOMA
     Dosage: 1.92 MG, CYCLIC
     Route: 065
     Dates: start: 20110729, end: 20110822
  4. EFFERALGAN                         /00020001/ [Concomitant]
  5. RABEPRAZOLE SODIUM [Concomitant]
  6. DEXAMETHASONE [Concomitant]
     Indication: MULTIPLE MYELOMA
     Dosage: UNK
     Route: 048
     Dates: start: 20110729, end: 20110822
  7. AMLODIPINE BESYLATE [Concomitant]

REACTIONS (1)
  - GRAND MAL CONVULSION [None]
